FAERS Safety Report 19953173 (Version 1)
Quarter: 2021Q4

REPORT INFORMATION
  Report Type: Spontaneous
  Country: US (occurrence: US)
  Receive Date: 20211012
  Receipt Date: 20211012
  Transmission Date: 20220303
  Serious: Yes (Hospitalization)
  Sender: FDA-Public Use
  Company Number: None

PATIENT
  Age: 68 Year
  Sex: Male
  Weight: 225 kg

DRUGS (1)
  1. HEPARIN SODIUM, BOVINE [Suspect]
     Active Substance: HEPARIN SODIUM, BOVINE
     Indication: Thrombosis prophylaxis
     Route: 058
     Dates: start: 20210813, end: 20210827

REACTIONS (1)
  - Thrombocytopenia [None]

NARRATIVE: CASE EVENT DATE: 20210827
